FAERS Safety Report 22019541 (Version 1)
Quarter: 2023Q1

REPORT INFORMATION
  Report Type: Spontaneous
  Country: US (occurrence: US)
  Receive Date: 20230222
  Receipt Date: 20230222
  Transmission Date: 20230418
  Serious: Yes (Other)
  Sender: FDA-Public Use
  Company Number: US-CADILA HEALTHCARE LIMITED-US-ZYDUS-088287

PATIENT

DRUGS (1)
  1. WARFARIN [Interacting]
     Active Substance: WARFARIN
     Indication: Ischaemic stroke
     Dosage: 10 MILLIGRAM, QD AT NIGHT
     Route: 065

REACTIONS (2)
  - Drug interaction [Unknown]
  - Anticoagulation drug level above therapeutic [Unknown]
